APPROVED DRUG PRODUCT: OXANDROLONE
Active Ingredient: OXANDROLONE
Strength: 10MG
Dosage Form/Route: TABLET;ORAL
Application: A078033 | Product #001
Applicant: UPSHER SMITH LABORATORIES LLC
Approved: Mar 22, 2007 | RLD: No | RS: No | Type: DISCN